FAERS Safety Report 6831766-9 (Version None)
Quarter: 2010Q2

REPORT INFORMATION
  Report Type: 
  Country: None (occurrence: None)
  Receive Date: 20100520
  Receipt Date: 20090424
  Transmission Date: 20101027
  Serious: Yes (Other)
  Sender: FDA-Public Use
  Company Number: 2009195950

PATIENT
  Age: 68 Year
  Sex: Female
  Weight: 74 kg

DRUGS (7)
  1. PROVERA [Suspect]
     Indication: MENOPAUSE
     Dosage: 10 MG, 1X/DAY, ORAL ; 2.5 MG, 1X/DAY, ORAL
     Route: 048
     Dates: start: 19940101, end: 19970101
  2. PROVERA [Suspect]
     Indication: MENOPAUSE
     Dosage: 10 MG, 1X/DAY, ORAL ; 2.5 MG, 1X/DAY, ORAL
     Route: 048
     Dates: start: 19940101
  3. PREMARIN [Suspect]
     Indication: MENOPAUSE
     Dosage: 0.3 ; 0.625 MG, 1X/DAY
     Dates: start: 19890101, end: 19930101
  4. PREMARIN [Suspect]
     Indication: MENOPAUSE
     Dosage: 0.3 ; 0.625 MG, 1X/DAY
     Dates: start: 19930101, end: 19970101
  5. PREMPRO [Suspect]
     Indication: MENOPAUSE
     Dosage: 0.625/2.5
     Dates: start: 19970101, end: 20020101
  6. MEDROXYPROGESTERONE ACETATE [Suspect]
     Indication: MENOPAUSE
     Dosage: 10 MG, 1X/DAY
     Dates: start: 19890101, end: 19940101
  7. EFFEXOR [Concomitant]

REACTIONS (1)
  - BREAST CANCER FEMALE [None]
